FAERS Safety Report 20318604 (Version 1)
Quarter: 2022Q1

REPORT INFORMATION
  Report Type: Report from Study
  Country: US (occurrence: US)
  Receive Date: 20220110
  Receipt Date: 20220110
  Transmission Date: 20220423
  Serious: Yes (Death, Hospitalization)
  Sender: FDA-Public Use
  Company Number: US-SERVIER-S21014677

PATIENT

DRUGS (8)
  1. PEGASPARGASE [Suspect]
     Active Substance: PEGASPARGASE
     Indication: Acute lymphocytic leukaemia
     Dosage: 2000 IU/M2, ON D 15 AND 43
     Route: 042
     Dates: start: 202108
  2. PEGASPARGASE [Suspect]
     Active Substance: PEGASPARGASE
     Dosage: 2000 IU/M2, ON D 15 AND 43
     Route: 042
     Dates: start: 20211206
  3. CYCLOPHOSPHAMIDE [Suspect]
     Active Substance: CYCLOPHOSPHAMIDE
     Indication: Acute lymphocytic leukaemia
     Dosage: 1000 MG/M2, ON D1 AND 29
     Route: 042
     Dates: start: 20211122, end: 20211122
  4. CYTARABINE [Suspect]
     Active Substance: CYTARABINE
     Indication: Acute lymphocytic leukaemia
     Dosage: 75 MG/M2, OTHER
     Route: 042
     Dates: start: 20211122, end: 20211202
  5. MERCAPTOPURINE [Suspect]
     Active Substance: MERCAPTOPURINE
     Indication: Acute lymphocytic leukaemia
     Dosage: 60 MG/M2, ON D1-14 AND 29-42
     Route: 048
     Dates: start: 20211116, end: 20211208
  6. RITUXIMAB [Suspect]
     Active Substance: RITUXIMAB
     Indication: Acute lymphocytic leukaemia
     Dosage: 375 MG/M2, ON D 1, 8, 29 AND 36
     Route: 042
     Dates: start: 20211122, end: 20211129
  7. VINCRISTINE [Suspect]
     Active Substance: VINCRISTINE
     Indication: Acute lymphocytic leukaemia
     Dosage: 2 MG/M2, ON D 1, 8, 15 AND 22
     Route: 042
     Dates: start: 20211206, end: 20211206
  8. METHOTREXATE [Suspect]
     Active Substance: METHOTREXATE
     Indication: Acute lymphocytic leukaemia
     Dosage: 15 MG/M2, ON D1, 8, 15 AND 22
     Route: 037
     Dates: start: 20211124, end: 20211201

REACTIONS (2)
  - Septic shock [Fatal]
  - Febrile neutropenia [Unknown]

NARRATIVE: CASE EVENT DATE: 20211212
